FAERS Safety Report 6412218-7 (Version None)
Quarter: 2009Q4

REPORT INFORMATION
  Report Type: 
  Country: None (occurrence: None)
  Receive Date: 20091023
  Receipt Date: 20091018
  Transmission Date: 20100525
  Serious: Yes (Other)
  Sender: FDA-Public Use
  Company Number: B0597670A

PATIENT
  Sex: Female

DRUGS (3)
  1. ARIXTRA [Suspect]
     Indication: THROMBOSIS PROPHYLAXIS
     Dosage: 2.5MG PER DAY
     Route: 058
     Dates: start: 20090927, end: 20090928
  2. TRANSAMIN [Concomitant]
     Indication: HAEMORRHAGE PROPHYLAXIS
     Route: 014
     Dates: start: 20090925
  3. PEON [Concomitant]
     Indication: PROCEDURAL PAIN
     Dosage: 240MG PER DAY
     Route: 048
     Dates: start: 20090926, end: 20090930

REACTIONS (4)
  - FIBRIN D DIMER INCREASED [None]
  - HAEMORRHAGE SUBCUTANEOUS [None]
  - OEDEMA PERIPHERAL [None]
  - PULMONARY EMBOLISM [None]
